FAERS Safety Report 10050224 (Version 1)
Quarter: 2014Q2

REPORT INFORMATION
  Report Type: Spontaneous
  Country: GB (occurrence: GB)
  Receive Date: 20140401
  Receipt Date: 20140401
  Transmission Date: 20141212
  Serious: Yes (Hospitalization)
  Sender: FDA-Public Use
  Company Number: GB-ASTRAZENECA-2014SE20315

PATIENT
  Age: 53 Year
  Sex: Female

DRUGS (7)
  1. OMEPRAZOLE [Suspect]
     Indication: GASTRITIS
     Route: 048
     Dates: end: 20130930
  2. AMOXICILLIN [Suspect]
     Indication: LOWER RESPIRATORY TRACT INFECTION
     Route: 048
     Dates: start: 20130807, end: 20130814
  3. TAZOCIN [Suspect]
     Indication: CHRONIC OBSTRUCTIVE PULMONARY DISEASE
     Route: 042
     Dates: start: 20130914, end: 20130925
  4. GENTAMICIN [Suspect]
     Indication: LOWER RESPIRATORY TRACT INFECTION
     Route: 042
     Dates: start: 20130916, end: 20130929
  5. CIPROFLOXACIN [Concomitant]
     Dates: start: 201307
  6. LAXATIVES [Concomitant]
     Indication: CONSTIPATION
  7. OPIATES [Concomitant]
     Indication: BACK PAIN

REACTIONS (3)
  - Clostridium difficile infection [Recovered/Resolved]
  - Constipation [Unknown]
  - Back pain [Unknown]
